FAERS Safety Report 9311829 (Version 1)
Quarter: 2013Q2

REPORT INFORMATION
  Report Type: Spontaneous
  Country: BR (occurrence: BR)
  Receive Date: 20130528
  Receipt Date: 20130528
  Transmission Date: 20140414
  Serious: Yes (Hospitalization)
  Sender: FDA-Public Use
  Company Number: PHHY2013BR050332

PATIENT
  Age: 58 Year
  Sex: Male

DRUGS (5)
  1. INFLUENZA VIRUS VACCINE - PANDEMIC INN [Suspect]
     Indication: IMMUNISATION
     Dosage: 1 DF
  2. SIMVASTATIN [Suspect]
     Dosage: 40 MG, UNK
  3. ACETYLSALICYLIC ACID [Concomitant]
     Dosage: 200 MG, UNK
  4. SPIRONOLACTONE [Concomitant]
     Dosage: 25 MG, UNK
  5. GLIBENCLAMIDE [Concomitant]
     Dosage: 5 MG, UNK

REACTIONS (17)
  - Rhabdomyolysis [Unknown]
  - Dehydration [Unknown]
  - Quadriparesis [Unknown]
  - Areflexia [Unknown]
  - Chromaturia [Unknown]
  - Dysuria [Unknown]
  - Gait disturbance [Unknown]
  - Muscular weakness [Unknown]
  - Myalgia [Unknown]
  - Renal failure acute [Recovered/Resolved]
  - Oliguria [Recovered/Resolved]
  - Pulmonary congestion [Unknown]
  - Localised oedema [Unknown]
  - Oedema peripheral [Unknown]
  - Scrotal oedema [Unknown]
  - Hepatomegaly [Unknown]
  - Pain [Unknown]
